FAERS Safety Report 16530988 (Version 3)
Quarter: 2025Q2

REPORT INFORMATION
  Report Type: Spontaneous
  Country: PT (occurrence: PT)
  Receive Date: 20190705
  Receipt Date: 20250516
  Transmission Date: 20250717
  Serious: Yes (Congenital Anomaly, Other)
  Sender: AUROBINDO
  Company Number: PT-AUROBINDO-AUR-APL-2019-037428

PATIENT
  Age: 21 Week
  Sex: Female

DRUGS (1)
  1. LEVETIRACETAM [Suspect]
     Active Substance: LEVETIRACETAM
     Indication: Product used for unknown indication
     Route: 064

REACTIONS (3)
  - Hypotonia neonatal [Unknown]
  - Amniotic band syndrome [Not Recovered/Not Resolved]
  - Maternal exposure during pregnancy [Unknown]
